FAERS Safety Report 6125066-2 (Version None)
Quarter: 2009Q1

REPORT INFORMATION
  Report Type: 
  Country: None (occurrence: None)
  Receive Date: 20090318
  Receipt Date: 20090306
  Transmission Date: 20090719
  Serious: Yes (Hospitalization, Other)
  Sender: FDA-Public Use
  Company Number: 232532K09USA

PATIENT
  Age: 42 Year
  Sex: Female

DRUGS (3)
  1. REBIF [Suspect]
     Indication: MULTIPLE SCLEROSIS
     Dosage: 44 MCG, 3 IN 1 WEEKS, SUBCUTANEOUS
     Route: 058
     Dates: start: 20040502, end: 20070101
  2. ADVIL [Concomitant]
  3. MULTI-VITAMINS [Concomitant]

REACTIONS (5)
  - ABDOMINAL ADHESIONS [None]
  - FALL [None]
  - FATIGUE [None]
  - MIGRAINE [None]
  - ULNAR NERVE INJURY [None]
